FAERS Safety Report 13986424 (Version 1)
Quarter: 2017Q3

REPORT INFORMATION
  Report Type: Spontaneous
  Country: US (occurrence: None)
  Receive Date: 20170919
  Receipt Date: 20170919
  Transmission Date: 20171128
  Serious: Yes (Other)
  Sender: FDA-Public Use
  Company Number: None

PATIENT
  Age: 8 Year
  Sex: Male
  Weight: 30.6 kg

DRUGS (1)
  1. ATOMOXETINE. [Suspect]
     Active Substance: ATOMOXETINE HYDROCHLORIDE
     Indication: ATTENTION DEFICIT/HYPERACTIVITY DISORDER
     Route: 048
     Dates: start: 20170623, end: 20170626

REACTIONS (7)
  - Grimacing [None]
  - Nipple disorder [None]
  - Erythema [None]
  - Product substitution issue [None]
  - Chest pain [None]
  - Drug eruption [None]
  - Nipple pain [None]

NARRATIVE: CASE EVENT DATE: 20170623
